FAERS Safety Report 7410042-X (Version None)
Quarter: 2011Q2

REPORT INFORMATION
  Report Type: 
  Country: None (occurrence: None)
  Receive Date: 20110412
  Receipt Date: 20110408
  Transmission Date: 20111010
  Serious: Yes (Other)
  Sender: FDA-Public Use
  Company Number: GB-PFIZER INC-2011055178

PATIENT
  Age: 49 Year
  Sex: Female

DRUGS (1)
  1. CHAMPIX [Suspect]
     Indication: SMOKING CESSATION THERAPY
     Dosage: 0.5 MG, 1X/DAY
     Dates: start: 20110121, end: 20110123

REACTIONS (16)
  - VIOLENCE-RELATED SYMPTOM [None]
  - FEELING ABNORMAL [None]
  - GASTROINTESTINAL PAIN [None]
  - APATHY [None]
  - ARTHRALGIA [None]
  - EMOTIONAL DISORDER [None]
  - PERSONALITY CHANGE [None]
  - DEPRESSION SUICIDAL [None]
  - THINKING ABNORMAL [None]
  - TREMOR [None]
  - FEELING COLD [None]
  - VISION BLURRED [None]
  - MALAISE [None]
  - AGGRESSION [None]
  - FEELING OF DESPAIR [None]
  - PANIC REACTION [None]
